FAERS Safety Report 10191815 (Version 1)
Quarter: 2014Q2

REPORT INFORMATION
  Report Type: Spontaneous
  Country: US (occurrence: None)
  Receive Date: 20140522
  Receipt Date: 20140522
  Transmission Date: 20141212
  Serious: Yes (Hospitalization)
  Sender: FDA-Public Use
  Company Number: None

PATIENT
  Age: 47 Year
  Sex: Female

DRUGS (14)
  1. BUPROPION HCL SR [Suspect]
     Indication: MAJOR DEPRESSION
     Dosage: 1 TABLET QD ORAL
     Route: 048
     Dates: start: 20140501, end: 20140502
  2. CARISOPRODOL [Concomitant]
  3. ACETAMINOPHEN [Concomitant]
  4. DICYCLOMINE [Concomitant]
  5. ESCITALOPRAM [Concomitant]
  6. GABAPENTIN [Concomitant]
  7. FLUCONAZOLE [Concomitant]
  8. MELATONIN [Concomitant]
  9. MACROBID [Concomitant]
  10. SEASONIQUE [Concomitant]
  11. OMEPRAZOLE [Concomitant]
  12. QUETIAPINE [Concomitant]
  13. MYLANTA [Concomitant]
  14. MILK OF MAG [Concomitant]

REACTIONS (1)
  - Convulsion [None]
